FAERS Safety Report 17635472 (Version 8)
Quarter: 2020Q4

REPORT INFORMATION
  Report Type: Spontaneous
  Country: US (occurrence: US)
  Receive Date: 20200406
  Receipt Date: 20201221
  Transmission Date: 20210113
  Serious: Yes (Other)
  Sender: FDA-Public Use
  Company Number: US-GILEAD-2020-0456864

PATIENT
  Age: 37 Year
  Sex: Female
  Weight: 72.56 kg

DRUGS (78)
  1. TRUVADA [Suspect]
     Active Substance: EMTRICITABINE\TENOFOVIR DISOPROXIL FUMARATE
     Dosage: UNK
     Route: 065
     Dates: start: 2007, end: 201712
  2. GENVOYA [Concomitant]
     Active Substance: COBICISTAT\ELVITEGRAVIR\EMTRICITABINE\TENOFOVIR ALAFENAMIDE FUMARATE
  3. COGENTIN [Concomitant]
     Active Substance: BENZTROPINE MESYLATE
  4. TRAZODONE [Concomitant]
     Active Substance: TRAZODONE HYDROCHLORIDE
     Dosage: UNK
     Dates: start: 201405
  5. NAPROXEN. [Concomitant]
     Active Substance: NAPROXEN
  6. LOTRISONE [Concomitant]
     Active Substance: BETAMETHASONE DIPROPIONATE\CLOTRIMAZOLE
  7. SEPTRA DS [Concomitant]
     Active Substance: SULFAMETHOXAZOLE\TRIMETHOPRIM
  8. ACYCLOVIR [ACICLOVIR] [Concomitant]
     Active Substance: ACYCLOVIR
  9. NORVIR [Suspect]
     Active Substance: RITONAVIR
     Indication: HIV INFECTION
     Dosage: 100 MG, QD
     Route: 048
     Dates: start: 20070508
  10. VALTREX [Concomitant]
     Active Substance: VALACYCLOVIR HYDROCHLORIDE
  11. SYMBICORT [Concomitant]
     Active Substance: BUDESONIDE\FORMOTEROL FUMARATE DIHYDRATE
     Dosage: UNK
     Dates: start: 201301
  12. VITAMIN B6 [Concomitant]
     Active Substance: PYRIDOXINE HYDROCHLORIDE
  13. NICOTINE. [Concomitant]
     Active Substance: NICOTINE
  14. AMOXICILLIN AND CLAVULANATE POTASSIUM [Concomitant]
     Active Substance: AMOXICILLIN\CLAVULANATE POTASSIUM
  15. NICODERM CQ [Concomitant]
     Active Substance: NICOTINE
  16. LAMICTAL [Concomitant]
     Active Substance: LAMOTRIGINE
  17. ADVAIR HFA [Concomitant]
     Active Substance: FLUTICASONE PROPIONATE\SALMETEROL XINAFOATE
     Dosage: UNK
     Dates: end: 201301
  18. LOTRIMIN [MICONAZOLE NITRATE] [Concomitant]
  19. SOMA [Concomitant]
     Active Substance: CARISOPRODOL
  20. VICODIN [Concomitant]
     Active Substance: ACETAMINOPHEN\HYDROCODONE BITARTRATE
  21. PNEUMOCOCCAL VACCINE POLYSACCH 23V [Concomitant]
     Active Substance: PNEUMOCOCCAL VACCINE, POLYVALENT 23
     Dosage: UNK
     Dates: start: 20161109, end: 20161109
  22. TYLENOL WITH CODEINE [Concomitant]
     Active Substance: ACETAMINOPHEN\CODEINE PHOSPHATE
  23. FLUCONAZOLE. [Concomitant]
     Active Substance: FLUCONAZOLE
  24. TRUVADA [Suspect]
     Active Substance: EMTRICITABINE\TENOFOVIR DISOPROXIL FUMARATE
     Indication: HIV INFECTION
     Dosage: 1 DOSAGE FORM, QD
     Route: 048
     Dates: start: 20070508, end: 201211
  25. DETROL LA [Concomitant]
     Active Substance: TOLTERODINE TARTRATE
  26. WELLBUTRIN [Concomitant]
     Active Substance: BUPROPION HYDROCHLORIDE
     Dosage: UNK
     Dates: end: 201211
  27. PRAZOSIN. [Concomitant]
     Active Substance: PRAZOSIN
  28. SIMETHICONE (DIMETHICONE) [Concomitant]
     Active Substance: DIMETHICONE
  29. TRAMADOL. [Concomitant]
     Active Substance: TRAMADOL
  30. GEODON [Concomitant]
     Active Substance: ZIPRASIDONE HYDROCHLORIDE\ZIPRASIDONE MESYLATE
  31. LATUDA [Concomitant]
     Active Substance: LURASIDONE HYDROCHLORIDE
     Dosage: UNK
     Dates: end: 201511
  32. FLEXERIL [Concomitant]
     Active Substance: CYCLOBENZAPRINE HYDROCHLORIDE
  33. HEPATITIS A VACCINE [Concomitant]
     Active Substance: HEPATITIS A VIRUS STRAIN HM175 ANTIGEN (FORMALDEHYDE INACTIVATED)
     Dosage: UNK
     Dates: start: 20080416, end: 20080416
  34. PRAVASTATIN. [Concomitant]
     Active Substance: PRAVASTATIN
  35. REYATAZ [Suspect]
     Active Substance: ATAZANAVIR SULFATE
     Indication: HIV INFECTION
     Dosage: 300 MG, QD
     Route: 048
     Dates: start: 20070508
  36. STRIBILD [Concomitant]
     Active Substance: COBICISTAT\ELVITEGRAVIR\EMTRICITABINE\TENOFOVIR DISOPROXIL FUMARATE
     Dosage: UNK
     Dates: start: 201704, end: 201704
  37. EPZICOM [Concomitant]
     Active Substance: ABACAVIR SULFATE\LAMIVUDINE
     Dosage: UNK
     Dates: start: 201211
  38. PRILOSEC [Concomitant]
     Active Substance: OMEPRAZOLE MAGNESIUM
     Indication: DYSPEPSIA
  39. LEXAPRO [Concomitant]
     Active Substance: ESCITALOPRAM OXALATE
  40. EUCERIN [PARAFFIN, LIQUID;PETROLATUM;WOOL FAT] [Concomitant]
  41. CLARITIN [Concomitant]
     Active Substance: LORATADINE
  42. DARVOCET [DEXTROPROPOXYPHENE NAPSILATE;PARACETAMOL] [Concomitant]
  43. COMPAZINE [Concomitant]
     Active Substance: PROCHLORPERAZINE MALEATE
  44. PENICILLIN V POTASSIUM. [Concomitant]
     Active Substance: PENICILLIN V POTASSIUM
  45. VESICARE [Concomitant]
     Active Substance: SOLIFENACIN SUCCINATE
  46. REQUIP [Concomitant]
     Active Substance: ROPINIROLE HYDROCHLORIDE
  47. IBUPROFEN. [Concomitant]
     Active Substance: IBUPROFEN
  48. RANITIDINE. [Concomitant]
     Active Substance: RANITIDINE
     Dosage: UNK
     Dates: end: 200810
  49. MULTIVITAMINS [VITAMINS NOS] [Concomitant]
     Active Substance: VITAMINS
  50. DIPHTHERIA TETANUS ACELLULAR PERTUSSIS [Concomitant]
     Dosage: UNK
     Dates: start: 20081210, end: 20081210
  51. BACTRIM [Concomitant]
     Active Substance: SULFAMETHOXAZOLE\TRIMETHOPRIM
  52. KALETRA [Suspect]
     Active Substance: LOPINAVIR\RITONAVIR
     Indication: HIV INFECTION
     Dosage: 4 DOSAGE FORM, QD
     Route: 048
     Dates: start: 200810, end: 201211
  53. PREZISTA [Concomitant]
     Active Substance: DARUNAVIR ETHANOLATE
     Dosage: UNK
     Dates: start: 201211
  54. PRILOSEC [Concomitant]
     Active Substance: OMEPRAZOLE MAGNESIUM
     Indication: OESOPHAGITIS
     Dosage: UNK
     Dates: start: 200810
  55. ISONIAZID. [Concomitant]
     Active Substance: ISONIAZID
  56. CHOLECALCIFEROL [Concomitant]
     Active Substance: CHOLECALCIFEROL
  57. ALUMINUM MAGNESIUM HYDROXIDE [Concomitant]
  58. PNEUMOCOCCAL 13 VALENT VACCINE [Concomitant]
     Active Substance: PNEUMOCOCCAL 13-VALENT CONJUGATE VACCINE
     Dosage: UNK
     Dates: start: 20151020, end: 20151020
  59. NORVIR [Suspect]
     Active Substance: RITONAVIR
     Dosage: 100 MG, QD
     Route: 048
     Dates: start: 201211
  60. SEROQUEL [Concomitant]
     Active Substance: QUETIAPINE FUMARATE
  61. SINGULAIR [Concomitant]
     Active Substance: MONTELUKAST SODIUM
     Dosage: UNK
  62. ALBUTEROL [SALBUTAMOL] [Concomitant]
     Active Substance: ALBUTEROL
  63. LORAZEPAM. [Concomitant]
     Active Substance: LORAZEPAM
  64. EXCEDRIN [Concomitant]
     Active Substance: ACETAMINOPHEN\ASPIRIN\CAFFEINE
  65. TYLENOL COLD [Concomitant]
  66. KENALOG ORABASE [Concomitant]
     Active Substance: TRIAMCINOLONE ACETONIDE
  67. HEPATITIS A VACCINE [Concomitant]
     Active Substance: HEPATITIS A VIRUS STRAIN HM175 ANTIGEN (FORMALDEHYDE INACTIVATED)
     Dosage: UNK
     Dates: start: 20070620, end: 20070620
  68. INFLUENZA VACCINE [Concomitant]
     Active Substance: INFLUENZA VIRUS VACCINE
  69. PNEUMOCOCCAL VACCINE POLYSACCH 23V [Concomitant]
     Active Substance: PNEUMOCOCCAL VACCINE, POLYVALENT 23
     Dosage: UNK
     Dates: start: 20070620, end: 20070620
  70. PHENERGAN [Concomitant]
     Active Substance: PROMETHAZINE HYDROCHLORIDE
  71. ERGOCALCIFEROL. [Concomitant]
     Active Substance: ERGOCALCIFEROL
  72. GABAPENTIN. [Concomitant]
     Active Substance: GABAPENTIN
  73. ACETAMINOPHEN. [Concomitant]
     Active Substance: ACETAMINOPHEN
  74. HALOPERIDOL. [Concomitant]
     Active Substance: HALOPERIDOL
  75. LITHIUM. [Concomitant]
     Active Substance: LITHIUM
  76. HYCET [Concomitant]
     Active Substance: ACETAMINOPHEN\HYDROCODONE BITARTRATE
     Dosage: UNK
     Dates: start: 20150806
  77. TWINRIX [Concomitant]
     Active Substance: HEPATITIS A VIRUS STRAIN HM175 ANTIGEN (FORMALDEHYDE INACTIVATED)\HEPATITIS B VIRUS SUBTYPE ADW2 HBSAG SURFACE PROTEIN ANTIGEN
     Dosage: UNK
     Dates: start: 20071211, end: 20071211
  78. PNEUMOCOCCAL VACCINE POLYSACCH 23V [Concomitant]
     Active Substance: PNEUMOCOCCAL VACCINE, POLYVALENT 23
     Dosage: UNK
     Dates: start: 20120816, end: 20120816

REACTIONS (11)
  - Viral load increased [Unknown]
  - Anxiety [Not Recovered/Not Resolved]
  - Kidney infection [Recovered/Resolved]
  - Multiple fractures [Not Recovered/Not Resolved]
  - Humerus fracture [Not Recovered/Not Resolved]
  - Blood HIV RNA increased [Unknown]
  - Renal failure [Recovered/Resolved]
  - Tooth loss [Unknown]
  - Anogenital warts [Recovered/Resolved]
  - Depression [Not Recovered/Not Resolved]
  - Upper limb fracture [Not Recovered/Not Resolved]

NARRATIVE: CASE EVENT DATE: 200705
